FAERS Safety Report 8014548-4 (Version None)
Quarter: 2011Q4

REPORT INFORMATION
  Report Type: 
  Country: None (occurrence: None)
  Receive Date: 20111223
  Receipt Date: 20111214
  Transmission Date: 20120403
  Serious: Yes (Disabling)
  Sender: FDA-Public Use
  Company Number: TUK2011A00222

PATIENT
  Age: 65 Year
  Sex: Male

DRUGS (8)
  1. ALLOPURINOL [Concomitant]
  2. ACTOS [Suspect]
     Indication: PRODUCT USED FOR UNKNOWN INDICATION
     Dosage: (15 MG) (30 MG) (45 MG)
     Route: 048
     Dates: start: 20060401, end: 20061001
  3. ACTOS [Suspect]
     Indication: PRODUCT USED FOR UNKNOWN INDICATION
     Dosage: (15 MG) (30 MG) (45 MG)
     Route: 048
     Dates: start: 20070601, end: 20070601
  4. ACTOS [Suspect]
     Indication: PRODUCT USED FOR UNKNOWN INDICATION
     Dosage: (15 MG) (30 MG) (45 MG)
     Route: 048
     Dates: start: 20070601, end: 20111101
  5. AMLODIPINE [Concomitant]
  6. METFORMIN HCL [Concomitant]
  7. NAPROXEN [Concomitant]
  8. SIMVASTATIN [Concomitant]

REACTIONS (1)
  - BLADDER TRANSITIONAL CELL CARCINOMA [None]
